FAERS Safety Report 26218057 (Version 1)
Quarter: 2025Q4

REPORT INFORMATION
  Report Type: Spontaneous
  Country: CN (occurrence: CN)
  Receive Date: 20251231
  Receipt Date: 20251231
  Transmission Date: 20260117
  Serious: Yes (Other)
  Sender: BAYER HEALTHCARE PHARMACEUTICALS INC.
  Company Number: CN-BAYER-2025A167433

PATIENT
  Sex: Female

DRUGS (1)
  1. MIRENA [Suspect]
     Active Substance: LEVONORGESTREL
     Indication: Adenomyosis
     Dosage: 20?G/DAY
     Route: 015
     Dates: start: 2022, end: 2025

REACTIONS (4)
  - Endometrial cancer metastatic [None]
  - Metastases to lymph nodes [None]
  - Device use issue [None]
  - Product prescribing issue [None]

NARRATIVE: CASE EVENT DATE: 20220101
